FAERS Safety Report 6857337-6 (Version None)
Quarter: 2010Q3

REPORT INFORMATION
  Report Type: 
  Country: None (occurrence: None)
  Receive Date: 20100719
  Receipt Date: 20100618
  Transmission Date: 20110219
  Serious: No
  Sender: FDA-Public Use
  Company Number: US-BAYER-201026545NA

PATIENT
  Age: 56 Year
  Sex: Female
  Weight: 68 kg

DRUGS (2)
  1. ULTRAVIST (PHARMACY BULK) [Suspect]
     Indication: UROGRAM
     Dosage: TOTAL DAILY DOSE: 122 ML  UNIT DOSE: 500 ML
     Route: 042
     Dates: start: 20100618, end: 20100618
  2. CONTRAST [Concomitant]
     Route: 048
     Dates: start: 20100618, end: 20100618

REACTIONS (1)
  - EYE PRURITUS [None]
